FAERS Safety Report 20405108 (Version 1)
Quarter: 2022Q1

REPORT INFORMATION
  Report Type: Spontaneous
  Country: US (occurrence: None)
  Receive Date: 20220129
  Receipt Date: 20220129
  Transmission Date: 20220424
  Serious: Yes (Hospitalization)
  Sender: FDA-Public Use
  Company Number: None

PATIENT
  Sex: Male
  Weight: 14.5 kg

DRUGS (3)
  1. CYCLOPHOSPHAMIDE [Suspect]
     Active Substance: CYCLOPHOSPHAMIDE
     Dates: end: 20220123
  2. NEULASTA [Suspect]
     Active Substance: PEGFILGRASTIM
     Dosage: FREQUENCY : UNKNOWN;?
     Dates: end: 20220125
  3. TOPOTECAN [Suspect]
     Active Substance: TOPOTECAN HYDROCHLORIDE
     Dates: end: 20220123

REACTIONS (4)
  - Neuroblastoma [None]
  - Influenza [None]
  - Adenovirus test positive [None]
  - Respiratory failure [None]

NARRATIVE: CASE EVENT DATE: 20220126
